FAERS Safety Report 10238284 (Version 1)
Quarter: 2014Q2

REPORT INFORMATION
  Report Type: Spontaneous
  Country: US (occurrence: US)
  Receive Date: 20140616
  Receipt Date: 20140616
  Transmission Date: 20141212
  Serious: No
  Sender: FDA-Public Use
  Company Number: US-PFIZER INC-2014160903

PATIENT
  Sex: Female

DRUGS (2)
  1. PROTONIX [Suspect]
     Indication: GASTRIC DISORDER
     Dosage: 40 MG, 2X/DAY
     Route: 048
     Dates: start: 20140608
  2. PROTONIX [Concomitant]
     Dosage: UNK
     Route: 042
     Dates: start: 20140608, end: 20140608

REACTIONS (2)
  - Nausea [Unknown]
  - Dizziness [Unknown]
